APPROVED DRUG PRODUCT: AMIODARONE HYDROCHLORIDE
Active Ingredient: AMIODARONE HYDROCHLORIDE
Strength: 50MG/ML
Dosage Form/Route: INJECTABLE;INJECTION
Application: A076163 | Product #001
Applicant: DR REDDYS LABORATORIES LTD
Approved: Sep 5, 2003 | RLD: No | RS: No | Type: DISCN